FAERS Safety Report 8431092 (Version 3)
Quarter: 2012Q4

REPORT INFORMATION
  Report Type: Spontaneous
  Country: US (occurrence: None)
  Receive Date: 20120216
  Receipt Date: 20121226
  Transmission Date: 20130627
  Serious: Yes (Death, Hospitalization)
  Sender: FDA-Public Use
  Company Number: 2012SGN00044

PATIENT
  Age: 44 Year
  Sex: Female

DRUGS (1)
  1. ADCETRIS [Suspect]
     Indication: ADULT T-CELL LYMPHOMA/LEUKAEMIA
     Dosage: 1.8 MG/KG
     Dates: start: 20120127, end: 20120127

REACTIONS (10)
  - Hepatic failure [None]
  - Nausea [None]
  - Dysphagia [None]
  - Dysgeusia [None]
  - Decreased appetite [None]
  - Graft versus host disease in intestine [None]
  - Malignant neoplasm progression [None]
  - Hepatomegaly [None]
  - Lymphadenopathy [None]
  - Adult T-cell lymphoma/leukaemia [None]
